FAERS Safety Report 23537543 (Version 2)
Quarter: 2024Q3

REPORT INFORMATION
  Report Type: Spontaneous
  Country: PT (occurrence: PT)
  Receive Date: 20240219
  Receipt Date: 20240930
  Transmission Date: 20241017
  Serious: Yes (Other)
  Sender: MERCK
  Company Number: None

PATIENT
  Age: 79 Year
  Sex: Male

DRUGS (1)
  1. KEYTRUDA [Suspect]
     Active Substance: PEMBROLIZUMAB
     Indication: Squamous cell carcinoma of lung
     Dosage: UNK, CYCLICAL
     Route: 042
     Dates: start: 20210917

REACTIONS (1)
  - Renal tubular acidosis [Recovering/Resolving]

NARRATIVE: CASE EVENT DATE: 20240124
